FAERS Safety Report 15585518 (Version 1)
Quarter: 2018Q4

REPORT INFORMATION
  Report Type: Spontaneous
  Country: CN (occurrence: CN)
  Receive Date: 20181105
  Receipt Date: 20181105
  Transmission Date: 20190205
  Serious: Yes (Death, Other)
  Sender: FDA-Public Use
  Company Number: CN-BAUSCH-BL-2018-030112

PATIENT
  Age: 64 Year
  Sex: Male

DRUGS (3)
  1. FLUOROURACIL. [Suspect]
     Active Substance: FLUOROURACIL
     Indication: ADRENAL GLAND CANCER
     Route: 065
  2. OXALIPLATIN. [Suspect]
     Active Substance: OXALIPLATIN
     Indication: ADRENAL GLAND CANCER
     Route: 065
  3. LEUCOVORIN CA [Suspect]
     Active Substance: LEUCOVORIN CALCIUM
     Indication: ADRENAL GLAND CANCER
     Route: 065

REACTIONS (1)
  - Disease progression [Fatal]
